FAERS Safety Report 9369492 (Version 1)
Quarter: 2013Q2

REPORT INFORMATION
  Report Type: Spontaneous
  Country: US (occurrence: US)
  Receive Date: 20130626
  Receipt Date: 20130626
  Transmission Date: 20140414
  Serious: No
  Sender: FDA-Public Use
  Company Number: US-PFIZER INC-2013185487

PATIENT
  Sex: Male

DRUGS (1)
  1. TORISEL [Suspect]
     Dosage: UNK
     Route: 041

REACTIONS (6)
  - Rash generalised [Unknown]
  - Dermatitis allergic [Recovering/Resolving]
  - Skin ulcer [Unknown]
  - Skin lesion [Unknown]
  - Bedridden [Unknown]
  - Local swelling [Unknown]
